FAERS Safety Report 4884022-2 (Version None)
Quarter: 2006Q1

REPORT INFORMATION
  Report Type: 
  Country: None (occurrence: None)
  Receive Date: 20060117
  Receipt Date: 20060111
  Transmission Date: 20060701
  Serious: Yes (Hospitalization, Other)
  Sender: FDA-Public Use
  Company Number: 2006AL000106

PATIENT
  Age: 84 Year
  Sex: Female

DRUGS (7)
  1. SERAX (OXAZEPAM) CAPSULES, 30 MG (ALPHARMA) [Suspect]
     Dosage: 140 MG; QD; PO
     Route: 048
     Dates: start: 20050920
  2. EFFEXOR XR [Suspect]
     Dosage: 37.5 MG; QD; PO
     Route: 048
     Dates: start: 20050929, end: 20051001
  3. ANAFRANIL [Suspect]
     Dosage: 50 MG; QD; PO
     Route: 048
     Dates: start: 20050920, end: 20051001
  4. IMOVANE [Suspect]
     Dosage: 7.5 MG; QD; PO
     Route: 048
     Dates: start: 20050920, end: 20051001
  5. ZANIDIP [Suspect]
     Dosage: QD; PO
     Route: 048
  6. PRAVASTATIN SODIUM [Concomitant]
  7. FLUINDIONE [Concomitant]

REACTIONS (6)
  - ATRIAL FIBRILLATION [None]
  - DRUG INTERACTION [None]
  - EXTRAPYRAMIDAL DISORDER [None]
  - FALL [None]
  - HEAD INJURY [None]
  - ORTHOSTATIC HYPOTENSION [None]
